FAERS Safety Report 16358191 (Version 1)
Quarter: 2019Q2

REPORT INFORMATION
  Report Type: Spontaneous
  Country: US (occurrence: US)
  Receive Date: 20190418
  Receipt Date: 20190418
  Transmission Date: 20190711
  Serious: Yes (Hospitalization, Other)
  Sender: FDA-Public Use
  Company Number: None

PATIENT
  Age: 58 Year
  Sex: Female

DRUGS (12)
  1. LOVENOX [Suspect]
     Active Substance: ENOXAPARIN SODIUM
  2. CELEBREX [Concomitant]
     Active Substance: CELECOXIB
  3. DEXILANT [Concomitant]
     Active Substance: DEXLANSOPRAZOLE
  4. ASPIRIN. [Concomitant]
     Active Substance: ASPIRIN
  5. LASIX [Concomitant]
     Active Substance: FUROSEMIDE
  6. ZOCOR [Concomitant]
     Active Substance: SIMVASTATIN
  7. COUMADIN [Suspect]
     Active Substance: WARFARIN SODIUM
     Indication: ANTIPHOSPHOLIPID SYNDROME
     Route: 048
     Dates: start: 2006
  8. CYMBALTA PERCOCET [Concomitant]
  9. IRON [Concomitant]
     Active Substance: IRON
  10. CELLCEP [Concomitant]
  11. AMIODARONE [Concomitant]
     Active Substance: AMIODARONE
  12. CALCIUM [Concomitant]
     Active Substance: CALCIUM

REACTIONS (1)
  - Atrial fibrillation [None]

NARRATIVE: CASE EVENT DATE: 20150628
